APPROVED DRUG PRODUCT: PIMOZIDE
Active Ingredient: PIMOZIDE
Strength: 1MG
Dosage Form/Route: TABLET;ORAL
Application: A204521 | Product #001
Applicant: PH HEALTH LTD
Approved: Sep 28, 2015 | RLD: No | RS: No | Type: RX